FAERS Safety Report 10912025 (Version 1)
Quarter: 2015Q1

REPORT INFORMATION
  Report Type: Spontaneous
  Country: US (occurrence: None)
  Receive Date: 20150310
  Receipt Date: 20150310
  Transmission Date: 20150721
  Serious: Yes (Hospitalization)
  Sender: FDA-Public Use
  Company Number: None

PATIENT
  Age: 59 Year
  Sex: Female
  Weight: 90.7 kg

DRUGS (7)
  1. OMEPRAZOLE. [Concomitant]
     Active Substance: OMEPRAZOLE
  2. MAGIC MOUTHWASH [Concomitant]
     Active Substance: DIPHENHYDRAMINE HYDROCHLORIDE\LIDOCAINE HYDROCHLORIDE\NYSTATIN
  3. SILVADENE CREAM [Concomitant]
  4. LISINOPRIL. [Concomitant]
     Active Substance: LISINOPRIL
  5. METOPROLOL [Concomitant]
     Active Substance: METOPROLOL
  6. TRAZODONE [Concomitant]
     Active Substance: TRAZODONE HYDROCHLORIDE
  7. ERBITUX [Suspect]
     Active Substance: CETUXIMAB
     Dosage: COMMENTS:  CYLE 10 SCHEDULED FOR 10/20/14 WAS HELD DUE TO GRADE 3 RADIATION DERMATATITIS.  10/21/14 CETUXIMAB DISCONTINED DUE TO SEVERE DERMATITIS AND MUCOSITIS.  ?AGENT ADJUSTMENT:  DOSE NOT CHANGED?
     Dates: end: 20141013

REACTIONS (3)
  - Radiation skin injury [None]
  - Mucosal inflammation [None]
  - Oesophagitis [None]

NARRATIVE: CASE EVENT DATE: 20140923
